FAERS Safety Report 25806460 (Version 2)
Quarter: 2025Q4

REPORT INFORMATION
  Report Type: Spontaneous
  Country: RU (occurrence: RU)
  Receive Date: 20250916
  Receipt Date: 20251001
  Transmission Date: 20260118
  Serious: Yes (Other)
  Sender: NOVARTIS
  Company Number: RU-002147023-NVSC2025RU140929

PATIENT
  Age: 61 Year
  Sex: Female

DRUGS (1)
  1. COSENTYX [Suspect]
     Active Substance: SECUKINUMAB
     Indication: Psoriatic arthropathy
     Dosage: 150 MG, Q4W
     Route: 058
     Dates: start: 202304, end: 202503

REACTIONS (5)
  - Acute myocardial infarction [Recovered/Resolved]
  - Angina pectoris [Unknown]
  - Chest discomfort [Unknown]
  - Pallor [Unknown]
  - Cold sweat [Unknown]

NARRATIVE: CASE EVENT DATE: 20250320
